FAERS Safety Report 7723901-5 (Version None)
Quarter: 2011Q3

REPORT INFORMATION
  Report Type: 
  Country: None (occurrence: None)
  Receive Date: 20110901
  Receipt Date: 20110819
  Transmission Date: 20111222
  Serious: Yes (Hospitalization, Other)
  Sender: FDA-Public Use
  Company Number: US-ELI_LILLY_AND_COMPANY-US201108000688

PATIENT
  Sex: Female

DRUGS (13)
  1. PRISTIQ [Concomitant]
  2. WELLBUTRIN XL [Concomitant]
  3. DETROL LA [Concomitant]
  4. FISH OIL [Concomitant]
  5. CLONAZEPAM [Concomitant]
  6. CRANBERRY [Concomitant]
  7. VITAMIN B-12 [Concomitant]
  8. FLEXERIL [Concomitant]
  9. FORTEO [Suspect]
     Indication: OSTEOPOROSIS
     Dosage: 20 UG, QD
     Route: 065
     Dates: start: 20060101
  10. VYVANSE [Concomitant]
  11. LEVOXYL [Concomitant]
  12. ABILIFY [Concomitant]
  13. CALCIUM + VITAMIN D [Concomitant]

REACTIONS (12)
  - PELVIC FRACTURE [None]
  - UPPER LIMB FRACTURE [None]
  - ACCIDENT [None]
  - LIMB CRUSHING INJURY [None]
  - MULTIPLE FRACTURES [None]
  - BALANCE DISORDER [None]
  - SPINAL FRACTURE [None]
  - LOWER LIMB FRACTURE [None]
  - INFECTION [None]
  - WRIST FRACTURE [None]
  - MUSCULOSKELETAL DISORDER [None]
  - FALL [None]
